FAERS Safety Report 9547269 (Version 2)
Quarter: 2013Q4

REPORT INFORMATION
  Report Type: Spontaneous
  Country: US (occurrence: None)
  Receive Date: 20130919
  Receipt Date: 20131107
  Transmission Date: 20140711
  Serious: Yes (Other)
  Sender: FDA-Public Use
  Company Number: ADR-2013-01643

PATIENT
  Sex: Male

DRUGS (2)
  1. BACLOFEN INTRATHECAL [Suspect]
     Indication: CANCER PAIN
     Dosage: 967.2MCG/DAY
  2. DILAUDID [Suspect]

REACTIONS (2)
  - Death [None]
  - Chondrosarcoma metastatic [None]
